FAERS Safety Report 15036190 (Version 1)
Quarter: 2018Q2

REPORT INFORMATION
  Report Type: Spontaneous
  Country: US (occurrence: US)
  Receive Date: 20180620
  Receipt Date: 20180620
  Transmission Date: 20180711
  Serious: No
  Sender: FDA-Public Use
  Company Number: US-GALDERMA-US18011922

PATIENT
  Age: 60 Year
  Sex: Female

DRUGS (19)
  1. PROACTIV MD DEEP CLEANSING FACE WASH [Concomitant]
     Active Substance: COSMETICS
     Indication: RASH PAPULAR
     Route: 061
     Dates: start: 20180119, end: 20180131
  2. CALCIUM ACETATE. [Concomitant]
     Active Substance: CALCIUM ACETATE
  3. BUPROPION. [Concomitant]
     Active Substance: BUPROPION
  4. VITAMIN D [Concomitant]
     Active Substance: CHOLECALCIFEROL
  5. CALCITRIOL. [Concomitant]
     Active Substance: CALCITRIOL
  6. NISTATIN [Concomitant]
     Active Substance: NYSTATIN
  7. PROACTIV SOLUTION DAILY PROTECTION PLUS SUNSCREEN SPF 30 [Suspect]
     Active Substance: AVOBENZONE\HOMOSALATE\OCTINOXATE\OCTISALATE\OXYBENZONE
     Indication: RASH PAPULAR
     Route: 061
     Dates: start: 20180119, end: 20180131
  8. GENTAMICIN. [Concomitant]
     Active Substance: GENTAMICIN
  9. LEVOTHYROXINE. [Concomitant]
     Active Substance: LEVOTHYROXINE
  10. MAGNESIUM [Concomitant]
     Active Substance: MAGNESIUM
  11. ALBUTEROL. [Concomitant]
     Active Substance: ALBUTEROL
  12. ASPIRIN. [Concomitant]
     Active Substance: ASPIRIN
  13. CITALOPRAM [Concomitant]
     Active Substance: CITALOPRAM HYDROBROMIDE
  14. NEUROTIN [Concomitant]
     Active Substance: GABAPENTIN
  15. SPIOLTO RESPIMAT [Concomitant]
     Active Substance: OLODATEROL HYDROCHLORIDE\TIOTROPIUM BROMIDE MONOHYDRATE
  16. PROACTIV MD ADAPALENE ACNE TREATMENT [Suspect]
     Active Substance: ADAPALENE
     Indication: RASH PAPULAR
     Route: 061
     Dates: start: 20180119, end: 20180131
  17. OXYCODONE [Concomitant]
     Active Substance: OXYCODONE
  18. PANTOPRAZOLE [Concomitant]
     Active Substance: PANTOPRAZOLE
  19. TRAZODONE [Concomitant]
     Active Substance: TRAZODONE HYDROCHLORIDE

REACTIONS (4)
  - Overdose [Recovered/Resolved]
  - Product use in unapproved indication [Recovered/Resolved]
  - Skin burning sensation [Recovering/Resolving]
  - Inappropriate schedule of drug administration [Recovered/Resolved]

NARRATIVE: CASE EVENT DATE: 20180119
